FAERS Safety Report 7167922-2 (Version None)
Quarter: 2010Q4

REPORT INFORMATION
  Report Type: 
  Country: None (occurrence: None)
  Receive Date: 20101216
  Receipt Date: 20101207
  Transmission Date: 20110411
  Serious: No
  Sender: FDA-Public Use
  Company Number: US-PFIZER INC-2010167067

PATIENT
  Sex: Male

DRUGS (1)
  1. CHANTIX [Suspect]

REACTIONS (5)
  - ABNORMAL DREAMS [None]
  - DISTURBANCE IN ATTENTION [None]
  - FLUSHING [None]
  - PYREXIA [None]
  - SINUS CONGESTION [None]
